FAERS Safety Report 9863351 (Version 1)
Quarter: 2014Q1

REPORT INFORMATION
  Report Type: Spontaneous
  Country: TR (occurrence: TR)
  Receive Date: 20140203
  Receipt Date: 20140203
  Transmission Date: 20141002
  Serious: Yes (Other)
  Sender: FDA-Public Use
  Company Number: TR-WATSON-2014-01048

PATIENT
  Age: 23 Year
  Sex: Female

DRUGS (3)
  1. LIDOCAINE (UNKNOWN) [Suspect]
     Indication: EPIDURAL ANAESTHESIA
     Dosage: 60 MG, SINGLE
     Route: 008
  2. BUPIVACAINE (UNKNOWN) [Suspect]
     Indication: EPIDURAL ANAESTHESIA
     Dosage: 75 MG, SINGLE
     Route: 008
  3. PRILOCAINE [Suspect]
     Indication: LOCAL ANAESTHESIA
     Dosage: 40 MG OF 2% SOLUTION, SINGLE
     Route: 061

REACTIONS (1)
  - Type I hypersensitivity [Unknown]
